FAERS Safety Report 7990144-X (Version None)
Quarter: 2011Q4

REPORT INFORMATION
  Report Type: 
  Country: None (occurrence: None)
  Receive Date: 20111219
  Receipt Date: 20110307
  Transmission Date: 20120403
  Serious: No
  Sender: FDA-Public Use
  Company Number: US-ASTRAZENECA-2011SE05527

PATIENT
  Sex: Male
  Weight: 83.9 kg

DRUGS (2)
  1. CRESTOR [Suspect]
     Route: 048
     Dates: end: 20110101
  2. CRESTOR [Suspect]
     Route: 048

REACTIONS (2)
  - PALPITATIONS [None]
  - ARRHYTHMIA [None]
